FAERS Safety Report 10575800 (Version 1)
Quarter: 2014Q4

REPORT INFORMATION
  Report Type: Spontaneous
  Country: GB (occurrence: GB)
  Receive Date: 20141111
  Receipt Date: 20141111
  Transmission Date: 20150529
  Serious: Yes (Death, Hospitalization, Other)
  Sender: FDA-Public Use
  Company Number: PHHY2014GB145855

PATIENT
  Age: 30 Year
  Sex: Female

DRUGS (8)
  1. CINACALCET [Suspect]
     Active Substance: CINACALCET
     Dosage: 90 MG, BID
     Route: 065
  2. ZOLEDRONATE [Suspect]
     Active Substance: ZOLEDRONIC ACID
     Indication: PARATHYROID TUMOUR
     Route: 042
  3. CINACALCET [Suspect]
     Active Substance: CINACALCET
     Dosage: 90 MG, QD
     Route: 065
  4. CINACALCET [Suspect]
     Active Substance: CINACALCET
     Dosage: 60 MG, QD
     Route: 065
  5. CINACALCET [Suspect]
     Active Substance: CINACALCET
     Dosage: 120 MG, QD
     Route: 065
  6. CINACALCET [Suspect]
     Active Substance: CINACALCET
     Indication: PARATHYROID TUMOUR
     Dosage: 90 MG, BID
     Route: 065
  7. CINACALCET [Suspect]
     Active Substance: CINACALCET
     Dosage: 60 MG, QD
     Route: 065
  8. CINACALCET [Suspect]
     Active Substance: CINACALCET
     Dosage: 30 MG, QD
     Route: 065

REACTIONS (6)
  - Death [Fatal]
  - Metastases to lung [Unknown]
  - Maternal exposure during pregnancy [Unknown]
  - Blood calcium increased [Not Recovered/Not Resolved]
  - General physical health deterioration [Unknown]
  - Normal newborn [Unknown]
